FAERS Safety Report 6043003-6 (Version None)
Quarter: 2009Q1

REPORT INFORMATION
  Report Type: 
  Country: None (occurrence: None)
  Receive Date: 20090119
  Receipt Date: 20090116
  Transmission Date: 20090719
  Serious: Yes (Hospitalization)
  Sender: FDA-Public Use
  Company Number: US-RB-008301-09

PATIENT
  Age: 26 Year
  Sex: Female

DRUGS (5)
  1. SUBOXONE [Suspect]
     Route: 060
  2. SEROQUEL [Concomitant]
     Indication: BIPOLAR DISORDER
     Dosage: UNKNOWN DOSE
     Route: 048
  3. EFFEXOR [Concomitant]
     Indication: DEPRESSION
     Dosage: UNKNOWN DOSE
     Route: 048
  4. BUSPAR [Concomitant]
     Indication: ANXIETY
     Dosage: UNKNOWN DOSE
     Route: 048
  5. TRAZODONE HCL [Concomitant]
     Indication: INSOMNIA
     Dosage: UNKNOWN DOSE
     Route: 048

REACTIONS (1)
  - HOSPITALISATION [None]
